FAERS Safety Report 4840355-7 (Version None)
Quarter: 2005Q4

REPORT INFORMATION
  Report Type: 
  Country: None (occurrence: None)
  Receive Date: 20051025
  Receipt Date: 20040826
  Transmission Date: 20060501
  Serious: No
  Sender: FDA-Public Use
  Company Number: 2004-02881

PATIENT
  Age: 80 Year
  Sex: Female
  Weight: 47.5 kg

DRUGS (9)
  1. TUBERSOL [Suspect]
     Indication: TUBERCULIN TEST
     Dosage: (0.1 ML),S.C.
     Route: 058
     Dates: start: 20040824
  2. K-TAB [Concomitant]
  3. LASIX [Concomitant]
  4. LOPRESSOR [Concomitant]
  5. NEPHROVITE [Concomitant]
  6. NORVASC [Concomitant]
  7. PROTONIX [Concomitant]
  8. TUMS [Concomitant]
  9. ZOLOFT [Concomitant]

REACTIONS (3)
  - DIARRHOEA [None]
  - GASTROENTERITIS NORWALK VIRUS [None]
  - VOMITING [None]
